FAERS Safety Report 6541407-6 (Version None)
Quarter: 2010Q1

REPORT INFORMATION
  Report Type: 
  Country: None (occurrence: None)
  Receive Date: 20100118
  Receipt Date: 20100112
  Transmission Date: 20100710
  Serious: Yes (Other)
  Sender: FDA-Public Use
  Company Number: US-BAYER-201010426BCC

PATIENT
  Sex: Male

DRUGS (2)
  1. ALEVE (CAPLET) [Suspect]
     Indication: MYALGIA
     Dosage: AS USED: 440 MG  UNIT DOSE: 220 MG
     Dates: start: 20000101
  2. TYLENOL (CAPLET) [Suspect]
     Indication: MYALGIA
     Dosage: 3900 TO 5200 MG DAILY
     Route: 048
     Dates: start: 20000101

REACTIONS (1)
  - EXSANGUINATION [None]
